FAERS Safety Report 21099594 (Version 1)
Quarter: 2022Q3

REPORT INFORMATION
  Report Type: Spontaneous
  Country: BG (occurrence: BG)
  Receive Date: 20220719
  Receipt Date: 20220719
  Transmission Date: 20221026
  Serious: Yes (Other)
  Sender: FDA-Public Use
  Company Number: BG-VELOXIS PHARMACEUTICALS-2022VELBG-000456

PATIENT
  Age: 30 Year
  Sex: Female

DRUGS (3)
  1. TACROLIMUS [Suspect]
     Active Substance: TACROLIMUS
     Indication: Prophylaxis
     Dosage: 0.01 MILLIGRAM/KILOGRAM (TARGET CONCENTRATION 9 ? 11 NG/ML), UNKNOWN FREQ.
  2. GILTERITINIB [Suspect]
     Active Substance: GILTERITINIB
     Indication: Acute myeloid leukaemia (in remission)
     Dosage: 120 MILLIGRAM, QD
  3. PEGFILGRASTIM [Concomitant]
     Active Substance: PEGFILGRASTIM
     Indication: Prophylaxis
     Dosage: 6 MICROGRAM, UNKNOWN FREQ.

REACTIONS (11)
  - Urinary bladder haemorrhage [Unknown]
  - Haematuria [Unknown]
  - Acute graft versus host disease in skin [Unknown]
  - Gastritis haemorrhagic [Unknown]
  - Thrombocytopenia [Unknown]
  - Acute myeloid leukaemia recurrent [Unknown]
  - Pancytopenia [Unknown]
  - Dysuria [Unknown]
  - BK virus infection [Unknown]
  - Off label use [Unknown]
  - Off label use [Unknown]
